FAERS Safety Report 18004574 (Version 1)
Quarter: 2020Q3

REPORT INFORMATION
  Report Type: Spontaneous
  Country: CA (occurrence: CA)
  Receive Date: 20200709
  Receipt Date: 20200709
  Transmission Date: 20201103
  Serious: Yes (Other)
  Sender: FDA-Public Use
  Company Number: CA-JNJFOC-20200702923

PATIENT
  Age: 71 Year
  Sex: Female
  Weight: 42 kg

DRUGS (2)
  1. AMOXICILLIN TRIHYDRATE AND CLAVULANATE POTASS [Suspect]
     Active Substance: AMOXICILLIN\CLAVULANATE POTASSIUM
     Indication: BRONCHITIS
     Route: 065
  2. REMICADE [Suspect]
     Active Substance: INFLIXIMAB
     Indication: CROHN^S DISEASE
     Route: 042

REACTIONS (10)
  - Mass [Unknown]
  - Atelectasis [Unknown]
  - Diarrhoea [Unknown]
  - Vascular procedure complication [Unknown]
  - Abdominal pain [Unknown]
  - Product use issue [Unknown]
  - Angioplasty [Unknown]
  - Decreased appetite [Unknown]
  - Bronchitis [Unknown]
  - Off label use [Unknown]
